FAERS Safety Report 5510151-6 (Version None)
Quarter: 2007Q4

REPORT INFORMATION
  Report Type: 
  Country: None (occurrence: None)
  Receive Date: 20071108
  Receipt Date: 20071102
  Transmission Date: 20080405
  Serious: Yes (Other)
  Sender: FDA-Public Use
  Company Number: JP-BRISTOL-MYERS SQUIBB COMPANY-13971510

PATIENT

DRUGS (2)
  1. MITOMYCIN [Suspect]
     Route: 013
  2. FARMORUBICIN [Suspect]
     Route: 013

REACTIONS (3)
  - BILE DUCT NECROSIS [None]
  - HEPATIC ARTERY STENOSIS [None]
  - LIVER ABSCESS [None]
